FAERS Safety Report 7109641-4 (Version None)
Quarter: 2010Q4

REPORT INFORMATION
  Report Type: 
  Country: None (occurrence: None)
  Receive Date: 20101115
  Receipt Date: 20101115
  Transmission Date: 20110411
  Serious: Yes (Other)
  Sender: FDA-Public Use
  Company Number: None

PATIENT
  Age: 30 Year
  Sex: Female
  Weight: 77.1115 kg

DRUGS (1)
  1. LEVAQUIN [Suspect]
     Indication: URINARY TRACT INFECTION
     Dosage: ONE TABLET 500MG DAILY PO
     Route: 048
     Dates: start: 20100819, end: 20100819

REACTIONS (4)
  - ANXIETY [None]
  - CONVULSION [None]
  - INSOMNIA [None]
  - MENTAL DISORDER [None]
